FAERS Safety Report 9352203 (Version 3)
Quarter: 2013Q2

REPORT INFORMATION
  Report Type: Spontaneous
  Country: RS (occurrence: RS)
  Receive Date: 20130617
  Receipt Date: 20130628
  Transmission Date: 20140414
  Serious: Yes (Other)
  Sender: FDA-Public Use
  Company Number: RS-009507513-1306SRB005986

PATIENT
  Age: 37 Year
  Sex: Female

DRUGS (3)
  1. SINGULAIR [Suspect]
     Indication: ASTHMA
     Dosage: 10 MG. 1X1
     Route: 048
     Dates: start: 20130610, end: 20130611
  2. SYMBICORT [Concomitant]
     Indication: ASTHMA
     Dosage: 2 X 1
     Route: 055
     Dates: start: 20130610
  3. BERODUAL [Concomitant]
     Indication: ASTHMA
     Dosage: AS NEEDED
     Route: 055
     Dates: start: 2012

REACTIONS (2)
  - Motor dysfunction [Recovered/Resolved]
  - Somnolence [Recovered/Resolved]
